FAERS Safety Report 15170656 (Version 1)
Quarter: 2018Q3

REPORT INFORMATION
  Report Type: Spontaneous
  Country: US (occurrence: US)
  Receive Date: 20180622
  Receipt Date: 20180622
  Transmission Date: 20181010
  Serious: Yes (Hospitalization, Disabling, Other)
  Sender: FDA-Public Use
  Company Number: None

PATIENT
  Age: 75 Year
  Sex: Female
  Weight: 97 kg

DRUGS (12)
  1. CARVEDILOL 6.25 MG BID [Concomitant]
  2. ZOLPIDEM 5 MG QHS PRN FOR SLEEP [Concomitant]
  3. OMEPRAZOLE 40 MG DAILY [Concomitant]
  4. ALENDRONATE [Suspect]
     Active Substance: ALENDRONATE SODIUM
     Indication: OSTEOPOROSIS
     Route: 048
     Dates: start: 20171208, end: 20180618
  5. FLUTICASONE 50 MCG TWO SPRAYS DAILY [Concomitant]
  6. FERROUS GLUCONATE 325 MG BID [Concomitant]
  7. OMEGA?3 FATTY ACIDS 1000 MG DAILY [Concomitant]
  8. ALENDRONATE [Suspect]
     Active Substance: ALENDRONATE SODIUM
     Indication: OSTEOPOROSIS PROPHYLAXIS
     Route: 048
     Dates: start: 20120914, end: 20171208
  9. CALTRATED 600MG/400UNIT TWO TABLETS DAILY [Concomitant]
  10. FUROSEMIDE 40 MG DAILY [Concomitant]
  11. OXYCODONE/APAP 5/325 MG ONE TABLET Q4H PRN FOR PAIN [Concomitant]
  12. MULTIVITAMIN ONCE DAILY [Concomitant]

REACTIONS (2)
  - Femur fracture [None]
  - Atypical femur fracture [None]

NARRATIVE: CASE EVENT DATE: 20180503
